FAERS Safety Report 4393146-8 (Version None)
Quarter: 2004Q3

REPORT INFORMATION
  Report Type: 
  Country: None (occurrence: None)
  Receive Date: 20040702
  Receipt Date: 20040412
  Transmission Date: 20050211
  Serious: Yes (Other)
  Sender: FDA-Public Use
  Company Number: 2004UW07348

PATIENT
  Age: 80 Year
  Sex: Female

DRUGS (11)
  1. CRESTOR [Suspect]
     Dosage: 10 MG QD PO
     Route: 048
  2. NEXIUM [Suspect]
     Dosage: 40 MG QD PO
     Route: 048
  3. MONOPRIL [Concomitant]
  4. LOPRESSOR [Concomitant]
  5. SYNTHROID [Concomitant]
  6. NORVASC [Concomitant]
  7. BENADRYL [Concomitant]
  8. NO MATCH [Concomitant]
  9. LASIX [Concomitant]
  10. CELEBREX [Concomitant]
  11. XANAX [Concomitant]

REACTIONS (1)
  - MYALGIA [None]
